FAERS Safety Report 18558854 (Version 1)
Quarter: 2020Q4

REPORT INFORMATION
  Report Type: Other
  Country: US (occurrence: US)
  Receive Date: 20201130
  Receipt Date: 20201130
  Transmission Date: 20210114
  Serious: Yes (Other)
  Sender: FDA-Public Use
  Company Number: US-ROCHE-2721576

PATIENT
  Age: 51 Year
  Sex: Female
  Weight: 86.7 kg

DRUGS (1)
  1. TOCILIZUMAB. [Suspect]
     Active Substance: TOCILIZUMAB
     Indication: COVID-19
     Route: 042

REACTIONS (4)
  - Off label use [Unknown]
  - Intentional product use issue [Unknown]
  - Klebsiella infection [Unknown]
  - Pneumonia [Unknown]
